FAERS Safety Report 20987040 (Version 1)
Quarter: 2022Q2

REPORT INFORMATION
  Report Type: Spontaneous
  Country: None (occurrence: FR)
  Receive Date: 20220621
  Receipt Date: 20220621
  Transmission Date: 20220721
  Serious: Yes (Hospitalization)
  Sender: FDA-Public Use
  Company Number: FR-B.Braun Medical Inc.-2130096

PATIENT
  Age: 69 Year
  Sex: Male
  Weight: 62 kg

DRUGS (11)
  1. METRONIDAZOLE [Suspect]
     Active Substance: METRONIDAZOLE
  2. VORICONAZOLE [Suspect]
     Active Substance: VORICONAZOLE
  3. CIPROFLOXACIN [Suspect]
     Active Substance: CIPROFLOXACIN
  4. CILASTATIN SODIUM\IMIPENEM [Suspect]
     Active Substance: CILASTATIN SODIUM\IMIPENEM
  5. LINEZOLID [Suspect]
     Active Substance: LINEZOLID
  6. CEFOTAXIME [Suspect]
     Active Substance: CEFOTAXIME SODIUM
  7. TYGACIL [Suspect]
     Active Substance: TIGECYCLINE
  8. LEVOFLOXACIN [Suspect]
     Active Substance: LEVOFLOXACIN
  9. AZACTAM [Suspect]
     Active Substance: AZTREONAM
  10. VANCOMYCIN [Suspect]
     Active Substance: VANCOMYCIN
  11. GENTAMICIN [Suspect]
     Active Substance: GENTAMICIN

REACTIONS (1)
  - Clostridium difficile colitis [Recovered/Resolved]
